FAERS Safety Report 7575206-3 (Version None)
Quarter: 2011Q2

REPORT INFORMATION
  Report Type: 
  Country: None (occurrence: None)
  Receive Date: 20110627
  Receipt Date: 20081129
  Transmission Date: 20111010
  Serious: Yes (Death, Hospitalization, Other)
  Sender: FDA-Public Use
  Company Number: US-BAYER-200840468NA

PATIENT
  Age: 69 Year
  Sex: Female
  Weight: 74.83 kg

DRUGS (32)
  1. LEVOPHED [Concomitant]
     Dosage: UNK
     Route: 042
     Dates: start: 20061110, end: 20061110
  2. POTASSIUM CHLORIDE [Concomitant]
     Dosage: 2 MILLIEQUIVALENTS
     Route: 042
     Dates: start: 20061110, end: 20061110
  3. FRESH FROZEN PLASMA [Concomitant]
     Dosage: UNK
  4. GLIPIZIDE [Concomitant]
     Dosage: 10 MG, QD
     Route: 048
     Dates: start: 20050522, end: 20061113
  5. ACETYLSALICYLIC ACID SRT [Concomitant]
     Dosage: 81 MG, QD
     Route: 042
     Dates: start: 20061106, end: 20061113
  6. TRASYLOL [Suspect]
     Indication: MITRAL VALVE REPLACEMENT
     Dosage: 200 CC LOADING DOSE
     Route: 042
     Dates: start: 20061110, end: 20061110
  7. RED BLOOD CELLS [Concomitant]
     Dosage: 2 UNK, UNK
     Route: 042
     Dates: start: 20061112
  8. LISINOPRIL [Concomitant]
     Dosage: 10 MG, QD
     Route: 048
     Dates: start: 20060108, end: 20061113
  9. HYDROCHLOROTHIAZIDE [Concomitant]
     Dosage: 12.5 MG, QD
     Route: 048
     Dates: start: 20061106, end: 20061113
  10. HEPARIN [Concomitant]
     Dosage: 850 UNITS PER HOUR
     Route: 042
     Dates: start: 20061107, end: 20061109
  11. HEPARIN [Concomitant]
     Dosage: 1000-30000 UNITS
     Route: 042
     Dates: start: 20061110, end: 20061110
  12. AMIODARONE HCL [Concomitant]
     Dosage: 150 MG
     Route: 042
     Dates: start: 20061110, end: 20061110
  13. PLATELETS [Concomitant]
     Dosage: 6 PACKS
     Route: 042
     Dates: start: 20061112
  14. VANCOMYCIN [Concomitant]
     Dosage: 1 G
     Route: 042
     Dates: start: 20061110, end: 20061113
  15. FENTANYL [Concomitant]
     Dosage: 250 MG
     Route: 042
     Dates: start: 20061110
  16. ETOMIDATE [Concomitant]
     Dosage: 20 MG/10 ML
     Route: 042
     Dates: start: 20061110, end: 20061110
  17. TRASYLOL [Suspect]
     Indication: CORONARY ARTERY BYPASS
     Dosage: 1 ML INITIAL TEST DOSE
     Route: 042
     Dates: start: 20061110, end: 20061110
  18. FRESH FROZEN PLASMA [Concomitant]
     Dosage: 2 U, UNK
     Route: 042
     Dates: start: 20061110
  19. PLATELETS [Concomitant]
     Dosage: 6 PACKS
     Route: 042
     Dates: start: 20061110
  20. RED BLOOD CELLS [Concomitant]
     Dosage: 6 U, UNK
     Route: 042
     Dates: start: 20061110
  21. RED BLOOD CELLS [Concomitant]
     Dosage: 4 UNK, UNK
     Route: 042
     Dates: start: 20061112
  22. TOPROL-XL [Concomitant]
     Dosage: 50 MG, QD
     Route: 048
     Dates: start: 20061107, end: 20061113
  23. CELEBREX [Concomitant]
     Dosage: 200 MG
     Route: 048
     Dates: start: 20060123, end: 20061107
  24. RED BLOOD CELLS [Concomitant]
     Dosage: 2 UNK, UNK
     Route: 042
     Dates: start: 20061111
  25. LIPITOR [Concomitant]
     Dosage: 20 MG, QD
     Route: 048
     Dates: start: 20061101, end: 20061113
  26. VERSED [Concomitant]
     Dosage: 2 MG
     Route: 042
     Dates: start: 20061110
  27. FENTANYL [Concomitant]
     Dosage: 50 MICROGRAMS
     Route: 042
     Dates: start: 20061108, end: 20061108
  28. RED BLOOD CELLS [Concomitant]
     Dosage: 11 U, UNK
     Route: 042
     Dates: start: 20061110
  29. VERSED [Concomitant]
     Dosage: 2 MG
     Route: 042
     Dates: start: 20061108, end: 20061108
  30. TRASYLOL [Suspect]
     Dosage: 50 CC/HOUR INFUSION
     Route: 042
     Dates: start: 20061110, end: 20061110
  31. REGULAR INSULIN [Concomitant]
     Dosage: SLIDING SCALE
     Route: 058
     Dates: start: 20061107, end: 20061113
  32. SODIUM BICARBONATE [Concomitant]
     Dosage: 100 MILLIEQUIVALENTS
     Route: 042
     Dates: start: 20061110

REACTIONS (9)
  - RENAL FAILURE [None]
  - INJURY [None]
  - DEPRESSION [None]
  - ANHEDONIA [None]
  - FEAR [None]
  - PAIN [None]
  - DEATH [None]
  - ANXIETY [None]
  - UNEVALUABLE EVENT [None]
